FAERS Safety Report 21521591 (Version 1)
Quarter: 2022Q4

REPORT INFORMATION
  Report Type: Spontaneous
  Country: US (occurrence: US)
  Receive Date: 20221028
  Receipt Date: 20221028
  Transmission Date: 20230113
  Serious: Yes (Other)
  Sender: FDA-Public Use
  Company Number: US-UNITED THERAPEUTICS-UNT-2022-025444

PATIENT
  Sex: Female

DRUGS (2)
  1. REMODULIN [Suspect]
     Active Substance: TREPROSTINIL
     Indication: Pulmonary arterial hypertension
     Dosage: UNK, CONTINUING
     Route: 058
     Dates: start: 20220608
  2. REMODULIN [Suspect]
     Active Substance: TREPROSTINIL
     Dosage: 0.0139 ?G/KG, CONTINUING
     Route: 058
     Dates: start: 2022

REACTIONS (4)
  - Right ventricular failure [Unknown]
  - Hypotension [Unknown]
  - Oedema peripheral [Unknown]
  - Drug intolerance [Unknown]

NARRATIVE: CASE EVENT DATE: 20220101
